FAERS Safety Report 9981369 (Version 2)
Quarter: 2014Q2

REPORT INFORMATION
  Report Type: Spontaneous
  Country: FR (occurrence: FR)
  Receive Date: 20140307
  Receipt Date: 20140606
  Transmission Date: 20141212
  Serious: Yes (Hospitalization)
  Sender: FDA-Public Use
  Company Number: FR-JNJFOC-20140301283

PATIENT
  Age: 85 Year
  Sex: Male

DRUGS (5)
  1. XARELTO [Suspect]
     Indication: PRODUCT USED FOR UNKNOWN INDICATION
     Route: 048
     Dates: start: 201401, end: 20140128
  2. TAHOR [Concomitant]
     Route: 065
  3. NIDREL [Concomitant]
     Route: 065
  4. COAPROVEL [Concomitant]
     Dosage: 300 MG/12, 5 MG/D
     Route: 065
  5. BISOPROLOL [Concomitant]
     Route: 065

REACTIONS (1)
  - Purpura [Recovered/Resolved]
